FAERS Safety Report 12092446 (Version 1)
Quarter: 2016Q1

REPORT INFORMATION
  Report Type: Spontaneous
  Country: US (occurrence: None)
  Receive Date: 20160217
  Receipt Date: 20160217
  Transmission Date: 20160526
  Serious: Yes (Hospitalization)
  Sender: FDA-Public Use
  Company Number: None

PATIENT
  Age: 65 Year

DRUGS (11)
  1. REVATIO [Suspect]
     Active Substance: SILDENAFIL CITRATE
     Indication: PRODUCT USED FOR UNKNOWN INDICATION
     Route: 048
     Dates: start: 20141218
  2. VITAMIN D3 [Concomitant]
     Active Substance: CHOLECALCIFEROL
  3. GENTAMICIN. [Concomitant]
     Active Substance: GENTAMICIN
  4. ZOLPIDEM [Concomitant]
     Active Substance: ZOLPIDEM\ZOLPIDEM TARTRATE
  5. POT CHLORIDE [Concomitant]
     Active Substance: POTASSIUM CHLORIDE
  6. TRAMADOL HCL [Concomitant]
     Active Substance: TRAMADOL HYDROCHLORIDE
  7. REVATIO [Concomitant]
     Active Substance: SILDENAFIL CITRATE
  8. LEVOTHYROXIN [Concomitant]
     Active Substance: LEVOTHYROXINE
  9. VITAMIN D [Concomitant]
     Active Substance: CHOLECALCIFEROL
  10. MELOXICAM. [Concomitant]
     Active Substance: MELOXICAM
  11. CIPROFLOXAON [Concomitant]

REACTIONS (4)
  - Cellulitis [None]
  - Lymphoedema [None]
  - Ankle fracture [None]
  - Fall [None]

NARRATIVE: CASE EVENT DATE: 20151223
